FAERS Safety Report 9761273 (Version 1)
Quarter: 2013Q4

REPORT INFORMATION
  Report Type: Spontaneous
  Country: US (occurrence: US)
  Receive Date: 20131216
  Receipt Date: 20131216
  Transmission Date: 20140711
  Serious: No
  Sender: FDA-Public Use
  Company Number: US-FOUGERA-2013FO000244

PATIENT
  Sex: Female

DRUGS (3)
  1. SOLARAZE [Suspect]
     Indication: NERVE INJURY
     Route: 061
     Dates: start: 2009
  2. SOLARAZE [Suspect]
     Indication: PAIN
  3. TOPICAL PRODUCTS FOR JOINT AND MUSCULAR PAIN [Concomitant]
     Indication: PAIN
     Dosage: COMPOUNDED PRODUCT INCLUDING KETAMINE (OTHER INGREDIENTS UNKNOWN.
     Route: 061

REACTIONS (3)
  - Off label use [Unknown]
  - Inappropriate schedule of drug administration [Unknown]
  - Rash [Unknown]
